FAERS Safety Report 10929065 (Version 2)
Quarter: 2015Q2

REPORT INFORMATION
  Report Type: Spontaneous
  Country: US (occurrence: US)
  Receive Date: 20150319
  Receipt Date: 20150524
  Transmission Date: 20150821
  Serious: No
  Sender: FDA-Public Use
  Company Number: US-JNJFOC-20130414982

PATIENT

DRUGS (2)
  1. GUANFACINE. [Suspect]
     Active Substance: GUANFACINE
     Indication: PRODUCT USED FOR UNKNOWN INDICATION
     Route: 048
  2. CONCERTA [Suspect]
     Active Substance: METHYLPHENIDATE HYDROCHLORIDE
     Indication: PRODUCT USED FOR UNKNOWN INDICATION
     Route: 048

REACTIONS (7)
  - Blood pressure increased [Unknown]
  - Heart rate increased [Unknown]
  - Wandering pacemaker [Recovered/Resolved]
  - Dizziness postural [Unknown]
  - Supraventricular extrasystoles [Recovered/Resolved]
  - Dizziness [Unknown]
  - Headache [Unknown]
